FAERS Safety Report 25274568 (Version 1)
Quarter: 2025Q2

REPORT INFORMATION
  Report Type: Spontaneous
  Country: CN (occurrence: CN)
  Receive Date: 20250506
  Receipt Date: 20250506
  Transmission Date: 20250716
  Serious: Yes (Hospitalization)
  Sender: PFIZER
  Company Number: CN-PFIZER INC-PV202500051369

PATIENT
  Age: 15 Month
  Sex: Female
  Weight: 9.5 kg

DRUGS (4)
  1. CYTARABINE [Suspect]
     Active Substance: CYTARABINE
     Indication: Myeloid leukaemia
     Dosage: 430 MG, 1X/DAY
     Route: 041
     Dates: start: 20250415, end: 20250419
  2. CYTARABINE [Suspect]
     Active Substance: CYTARABINE
     Indication: Acute myeloid leukaemia
  3. CLADRIBINE [Suspect]
     Active Substance: CLADRIBINE
     Indication: Myeloid leukaemia
     Dosage: 3.8 MG, 1X/DAY
     Route: 041
     Dates: start: 20250415, end: 20250419
  4. CLADRIBINE [Suspect]
     Active Substance: CLADRIBINE
     Indication: Acute myeloid leukaemia

REACTIONS (2)
  - Liver injury [Recovering/Resolving]
  - Off label use [Unknown]

NARRATIVE: CASE EVENT DATE: 20250415
